FAERS Safety Report 20912661 (Version 3)
Quarter: 2022Q3

REPORT INFORMATION
  Report Type: Spontaneous
  Country: CH (occurrence: CH)
  Receive Date: 20220603
  Receipt Date: 20220714
  Transmission Date: 20221027
  Serious: Yes (Other)
  Sender: FDA-Public Use
  Company Number: CH-AMERICAN REGENT INC-2022001458

PATIENT
  Age: 38 Year
  Sex: Female

DRUGS (4)
  1. FERINJECT [Suspect]
     Active Substance: FERRIC CARBOXYMALTOSE
     Indication: Iron deficiency anaemia
     Dosage: 1000 MG, 1 IN 1 D (DILUTED WITH 250 ML NACL)
     Dates: start: 20211223, end: 20211223
  2. IRON POLYMALTOSE [Suspect]
     Active Substance: IRON POLYMALTOSE
     Indication: Iron deficiency anaemia
     Dosage: UNK, BID
     Route: 048
     Dates: start: 20211223, end: 20220210
  3. MAGNESIUM DIASPORAL [MAGNESIUM CITRATE] [Concomitant]
     Indication: Abdominal discomfort
     Dosage: 300 MILLIGRAM, BID
     Route: 065
     Dates: start: 20210909, end: 20220210
  4. SODIUM CHLORIDE [Concomitant]
     Active Substance: SODIUM CHLORIDE
     Indication: Catheter management
     Dosage: OVER 3-4 MINUTES
     Route: 042
     Dates: start: 20211223, end: 20211223

REACTIONS (3)
  - Premature baby [Unknown]
  - Maternal exposure during pregnancy [Recovered/Resolved]
  - Hypersensitivity [Recovered/Resolved]

NARRATIVE: CASE EVENT DATE: 20211223
